FAERS Safety Report 6246105-4 (Version None)
Quarter: 2009Q2

REPORT INFORMATION
  Report Type: 
  Country: None (occurrence: None)
  Receive Date: 20090626
  Receipt Date: 20090417
  Transmission Date: 20091009
  Serious: No
  Sender: FDA-Public Use
  Company Number: A0771672A

PATIENT
  Age: 51 Year
  Sex: Female
  Weight: 75 kg

DRUGS (5)
  1. SUMATRIPTAN SUCCINATE [Suspect]
     Indication: MIGRAINE
     Dosage: 100MG AS REQUIRED
     Route: 048
     Dates: start: 20081201, end: 20081208
  2. TOPAMAX [Concomitant]
     Dosage: 200MG TWICE PER DAY
     Dates: start: 20070917
  3. SYNTHROID [Concomitant]
  4. VERAPAMIL [Concomitant]
  5. PRISTIQ [Concomitant]
     Dosage: 100MG PER DAY
     Route: 065
     Dates: start: 20081222

REACTIONS (2)
  - DRUG INEFFECTIVE [None]
  - PRODUCT QUALITY ISSUE [None]
